FAERS Safety Report 7512424-4 (Version None)
Quarter: 2011Q2

REPORT INFORMATION
  Report Type: 
  Country: None (occurrence: None)
  Receive Date: 20110520
  Receipt Date: 20110504
  Transmission Date: 20111010
  Serious: Yes (Other)
  Sender: FDA-Public Use
  Company Number: 1000020824

PATIENT
  Age: 72 Year
  Sex: Female

DRUGS (11)
  1. MUCOFALK (PLANTAGO OVATA) (PLANTAGO OVATA) [Concomitant]
  2. LACTULOSE (LACTULOSE)(LACTULOSE) [Concomitant]
  3. CITALOPRAM HYDROBROMIDE [Suspect]
     Dosage: 40 MG (40 MG,1 IN 1 D),ORAL, 20 MG (20 MG,1 IN 1 D),ORAL, 10 MG (10 MG,1 IN 1 D),ORAL
     Route: 048
     Dates: start: 20001110, end: 20001212
  4. CITALOPRAM HYDROBROMIDE [Suspect]
     Dosage: 40 MG (40 MG,1 IN 1 D),ORAL, 20 MG (20 MG,1 IN 1 D),ORAL, 10 MG (10 MG,1 IN 1 D),ORAL
     Route: 048
     Dates: start: 20001216, end: 20001218
  5. CITALOPRAM HYDROBROMIDE [Suspect]
     Dosage: 40 MG (40 MG,1 IN 1 D),ORAL, 20 MG (20 MG,1 IN 1 D),ORAL, 10 MG (10 MG,1 IN 1 D),ORAL
     Route: 048
     Dates: start: 20001213, end: 20001216
  6. DYTIDE H (TRIAMTERENE, HYDROCHLOROTHIAZIDE) (TABLETS) (TRIAMTERENE, HY [Concomitant]
  7. TEGRETOL [Suspect]
     Dosage: 200 MG (200 MG,1 IN 1 D),ORAL, 400 MG (400 MG, 1 IN 1 D),ORAL
     Route: 048
     Dates: start: 20001204, end: 20001205
  8. TEGRETOL [Suspect]
     Dosage: 200 MG (200 MG,1 IN 1 D),ORAL, 400 MG (400 MG, 1 IN 1 D),ORAL
     Route: 048
     Dates: start: 20001130, end: 20001203
  9. ADALAT (NIFEDIPLNE)(NRFEDIPINE) [Concomitant]
  10. TRIMIPRAMINE MALEATE [Suspect]
     Dosage: 250 MG (250 MG,1 IN 1 D),ORAL, 200 MG (200 MG,1 IN 1 D),ORAL
     Route: 048
     Dates: start: 20001023, end: 20001127
  11. TRIMIPRAMINE MALEATE [Suspect]
     Dosage: 250 MG (250 MG,1 IN 1 D),ORAL, 200 MG (200 MG,1 IN 1 D),ORAL
     Route: 048
     Dates: start: 20001128

REACTIONS (3)
  - CONDITION AGGRAVATED [None]
  - DRUG INTERACTION [None]
  - ELECTROCARDIOGRAM QT PROLONGED [None]
